FAERS Safety Report 4798264-8 (Version None)
Quarter: 2005Q4

REPORT INFORMATION
  Report Type: 
  Country: None (occurrence: None)
  Receive Date: 20051011
  Receipt Date: 20051011
  Transmission Date: 20060501
  Serious: Yes (Death, Life-Threatening, Hospitalization, Disabling)
  Sender: FDA-Public Use
  Company Number: None

PATIENT
  Sex: Male
  Weight: 86.1834 kg

DRUGS (2)
  1. TEQUIN [Suspect]
     Indication: CYSTITIS
     Dates: start: 20040925, end: 20040925
  2. TEQUIN [Suspect]
     Indication: PNEUMONIA
     Dates: start: 20040925, end: 20040925

REACTIONS (7)
  - APHASIA [None]
  - BLOOD PRESSURE INCREASED [None]
  - CEREBROVASCULAR ACCIDENT [None]
  - CONTRAINDICATION TO MEDICAL TREATMENT [None]
  - CONVULSION [None]
  - DYSPHAGIA [None]
  - RESPIRATORY DISORDER [None]
